FAERS Safety Report 24565232 (Version 2)
Quarter: 2024Q4

REPORT INFORMATION
  Report Type: Spontaneous
  Country: US (occurrence: US)
  Receive Date: 20241030
  Receipt Date: 20241108
  Transmission Date: 20250114
  Serious: Yes (Death, Other)
  Sender: BRISTOL-MYERS SQUIBB COMPANY
  Company Number: US-BRISTOL-MYERS SQUIBB COMPANY-2024-170193

PATIENT
  Age: 61 Year
  Sex: Female
  Weight: 88.9 kg

DRUGS (2)
  1. POMALYST [Suspect]
     Active Substance: POMALIDOMIDE
     Indication: Plasma cell myeloma
     Dosage: FREQUENCY: ONCE DAILY FOR 21 DAYS ON THEN 7 DAYS OFF/ 21
     Route: 048
     Dates: start: 20240814
  2. XPOVIO [Concomitant]
     Active Substance: SELINEXOR
     Indication: Plasma cell myeloma
     Dosage: WEEKLY
     Route: 048
     Dates: start: 20240814

REACTIONS (1)
  - Plasma cell myeloma [Fatal]
